FAERS Safety Report 9734135 (Version 2)
Quarter: 2013Q4

REPORT INFORMATION
  Report Type: Spontaneous
  Country: GB (occurrence: GB)
  Receive Date: 20131205
  Receipt Date: 20131205
  Transmission Date: 20140711
  Serious: Yes (Hospitalization, Other)
  Sender: FDA-Public Use
  Company Number: PHHY2013GB081117

PATIENT
  Age: 49 Year
  Sex: Male
  Weight: 105 kg

DRUGS (2)
  1. BENDROFLUMETHIAZIDE [Suspect]
  2. RAMIPRIL [Suspect]

REACTIONS (2)
  - Pancreatitis acute [Recovering/Resolving]
  - Abdominal pain upper [Recovering/Resolving]
